FAERS Safety Report 14768227 (Version 1)
Quarter: 2018Q2

REPORT INFORMATION
  Report Type: Spontaneous
  Country: GB (occurrence: GB)
  Receive Date: 20180417
  Receipt Date: 20180417
  Transmission Date: 20180711
  Serious: Yes (Other)
  Sender: FDA-Public Use
  Company Number: GB-LUPIN PHARMACEUTICALS INC.-2018-02909

PATIENT
  Age: 75 Year
  Sex: Male

DRUGS (2)
  1. LEVOBUPIVACAINE [Concomitant]
     Active Substance: LEVOBUPIVACAINE
     Indication: ANAESTHESIA
     Dosage: UNK
     Route: 065
  2. TRIAMCINOLONE ACETONIDE. [Suspect]
     Active Substance: TRIAMCINOLONE ACETONIDE
     Indication: MORTON^S NEURALGIA
     Dosage: UNK
     Route: 065

REACTIONS (4)
  - Skin ulcer [Unknown]
  - Localised oedema [Unknown]
  - Plantar fasciitis [Unknown]
  - Injection site calcification [Unknown]
